FAERS Safety Report 13213848 (Version 3)
Quarter: 2018Q4

REPORT INFORMATION
  Report Type: Spontaneous
  Country: CA (occurrence: CA)
  Receive Date: 20170210
  Receipt Date: 20181010
  Transmission Date: 20190204
  Serious: Yes (Hospitalization, Other)
  Sender: FDA-Public Use
  Company Number: CA-SA-2017SA019842

PATIENT
  Sex: Female

DRUGS (11)
  1. ACETYLSALICYLIC ACID [Suspect]
     Active Substance: ASPIRIN
     Indication: RHEUMATOID ARTHRITIS
     Dosage: UNK UNK,UNK
     Route: 065
  2. ENBREL [Suspect]
     Active Substance: ETANERCEPT
     Indication: RHEUMATOID ARTHRITIS
     Dosage: UNK UNK,UNK
     Route: 065
  3. TRAMADOL. [Concomitant]
     Active Substance: TRAMADOL
     Dosage: UNK
  4. METHOTREXATE. [Suspect]
     Active Substance: METHOTREXATE
     Indication: RHEUMATOID ARTHRITIS
     Dosage: UNK UNK,UNK
     Route: 065
  5. NAPROXEN. [Suspect]
     Active Substance: NAPROXEN
     Indication: RHEUMATOID ARTHRITIS
     Dosage: UNK UNK,UNK
     Route: 065
  6. ARAVA [Suspect]
     Active Substance: LEFLUNOMIDE
     Indication: RHEUMATOID ARTHRITIS
     Dosage: UNK UNK,UNK
     Route: 065
  7. GOLD [Suspect]
     Active Substance: GOLD
     Indication: RHEUMATOID ARTHRITIS
     Dosage: UNK UNK,UNK
     Route: 065
  8. EVE OUTER TAPE [DICLOFENAC SODIUM] [Suspect]
     Active Substance: DICLOFENAC SODIUM
     Indication: RHEUMATOID ARTHRITIS
     Dosage: UNK UNK,UNK
     Route: 065
  9. PLAQUENIL [Suspect]
     Active Substance: HYDROXYCHLOROQUINE SULFATE
     Indication: RHEUMATOID ARTHRITIS
     Dosage: UNK UNK,UNK
     Route: 065
  10. HUMIRA [Suspect]
     Active Substance: ADALIMUMAB
     Indication: RHEUMATOID ARTHRITIS
     Dosage: UNK UNK,UNK
     Route: 065
  11. IBUPROFEN. [Suspect]
     Active Substance: IBUPROFEN
     Indication: RHEUMATOID ARTHRITIS
     Dosage: UNK UNK,UNK
     Route: 065

REACTIONS (14)
  - Deafness transitory [Recovered/Resolved]
  - Ear infection [Recovered/Resolved]
  - Foot operation [Recovered/Resolved]
  - Pharyngitis [Recovered/Resolved]
  - Vomiting [Recovered/Resolved]
  - Headache [Recovered/Resolved]
  - Dizziness [Recovered/Resolved]
  - Shoulder arthroplasty [Recovered/Resolved]
  - Nausea [Recovered/Resolved]
  - Gastrointestinal pain [Recovered/Resolved]
  - Decreased appetite [Recovered/Resolved]
  - Weight decreased [Recovered/Resolved]
  - Adverse reaction [Recovered/Resolved]
  - Hypophagia [Recovered/Resolved]
